FAERS Safety Report 6317191-8 (Version None)
Quarter: 2009Q3

REPORT INFORMATION
  Report Type: 
  Country: None (occurrence: None)
  Receive Date: 20090819
  Receipt Date: 20090807
  Transmission Date: 20100115
  Serious: Yes (Death)
  Sender: FDA-Public Use
  Company Number: 2009AL005222

PATIENT
  Age: 24 Year
  Sex: Male
  Weight: 77.5651 kg

DRUGS (6)
  1. PROMETAN SYRUP PLAIN (PROMETHAZINE HCL SYRUP USP,) [Suspect]
  2. OPANA ER [Concomitant]
  3. LORTAB [Concomitant]
  4. VALIUM [Concomitant]
  5. RESTORIL [Concomitant]
  6. VERAPAMIL [Concomitant]

REACTIONS (6)
  - ARTERIOSCLEROSIS CORONARY ARTERY [None]
  - GENERALISED OEDEMA [None]
  - HAEMORRHAGE [None]
  - LIVIDITY [None]
  - PULMONARY CONGESTION [None]
  - VISCERAL CONGESTION [None]
